FAERS Safety Report 10008226 (Version 2)
Quarter: 2014Q1

REPORT INFORMATION
  Report Type: Spontaneous
  Country: US (occurrence: US)
  Receive Date: 20140313
  Receipt Date: 20140313
  Transmission Date: 20141002
  Serious: No
  Sender: FDA-Public Use
  Company Number: US-GILEAD-2013-0072019

PATIENT
  Sex: Male

DRUGS (12)
  1. LETAIRIS [Suspect]
     Indication: PRODUCT USED FOR UNKNOWN INDICATION
     Dosage: 5 MG, QD
  2. ADCIRCA [Concomitant]
  3. FUROSEMIDE [Concomitant]
  4. SYNTHROID [Concomitant]
  5. LOSARTAN [Concomitant]
  6. METOPROLOL [Concomitant]
  7. ATORVASTATIN [Concomitant]
  8. FOLIC ACID [Concomitant]
  9. GLUCOSAMINE [Concomitant]
  10. SPIRONOLACTONE [Concomitant]
  11. OMEGA 3                            /01334101/ [Concomitant]
  12. CENTRUM SILVER                     /02363801/ [Concomitant]

REACTIONS (3)
  - Middle ear effusion [Unknown]
  - Deafness [Unknown]
  - Unevaluable event [Unknown]
